FAERS Safety Report 16673207 (Version 1)
Quarter: 2019Q3

REPORT INFORMATION
  Report Type: Spontaneous
  Country: ES (occurrence: ES)
  Receive Date: 20190806
  Receipt Date: 20190806
  Transmission Date: 20191004
  Serious: Yes (Death, Hospitalization)
  Sender: FDA-Public Use
  Company Number: ES-MYLANLABS-2019M1073370

PATIENT
  Age: 64 Year
  Sex: Male

DRUGS (2)
  1. TENECTEPLASE [Concomitant]
     Active Substance: TENECTEPLASE
     Dosage: UNK
  2. PRASUGREL. [Suspect]
     Active Substance: PRASUGREL
     Indication: PRODUCT USED FOR UNKNOWN INDICATION
     Dosage: 10 MILLIGRAM, QD

REACTIONS (7)
  - Renal failure [Not Recovered/Not Resolved]
  - Headache [Not Recovered/Not Resolved]
  - Stupor [Not Recovered/Not Resolved]
  - Coma [Fatal]
  - ADAMTS13 activity decreased [Not Recovered/Not Resolved]
  - Thrombotic thrombocytopenic purpura [Not Recovered/Not Resolved]
  - Confusional state [Not Recovered/Not Resolved]
